FAERS Safety Report 20045183 (Version 3)
Quarter: 2022Q2

REPORT INFORMATION
  Report Type: Spontaneous
  Country: ES (occurrence: ES)
  Receive Date: 20211108
  Receipt Date: 20220622
  Transmission Date: 20220720
  Serious: Yes (Life-Threatening, Hospitalization, Disabling, Other)
  Sender: FDA-Public Use
  Company Number: ES-TEVA-2021-ES-1967610

PATIENT
  Age: 57 Year
  Sex: Female

DRUGS (3)
  1. ABSTRAL [Suspect]
     Active Substance: FENTANYL CITRATE
     Indication: Neuralgia
     Dosage: 2400 MICROGRAM DAILY; 1 COMPRESSED LOZENGE BUCCAL EVERY 1-2 HOURS WITHOUT NIGHT REST
     Route: 002
  2. ABSTRAL [Suspect]
     Active Substance: FENTANYL CITRATE
     Dosage: 1 COMPRESSED LOZENGE BUCCAL EVERY 1-2 HOURS WITHOUT NIGHT REST
     Route: 002
  3. FENTANYL [Suspect]
     Active Substance: FENTANYL
     Indication: Product used for unknown indication
     Route: 065

REACTIONS (9)
  - Soliloquy [Recovered/Resolved]
  - Drug dependence [Recovered/Resolved]
  - Toxicity to various agents [Recovered/Resolved]
  - Hyperaesthesia [Recovered/Resolved]
  - Allodynia [Recovered/Resolved]
  - Confusional state [Recovered/Resolved]
  - Loss of personal independence in daily activities [Recovered/Resolved]
  - Social avoidant behaviour [Recovered/Resolved]
  - Incoherent [Unknown]

NARRATIVE: CASE EVENT DATE: 20090101
